FAERS Safety Report 4533635-6 (Version None)
Quarter: 2004Q4

REPORT INFORMATION
  Report Type: 
  Country: None (occurrence: None)
  Receive Date: 20041221
  Receipt Date: 20041208
  Transmission Date: 20050328
  Serious: Yes (Hospitalization, Other)
  Sender: FDA-Public Use
  Company Number: US-GLAXOSMITHKLINE-A0536477A

PATIENT
  Age: 64 Year
  Sex: Female
  Weight: 53 kg

DRUGS (6)
  1. CITRUCEL CAPLETS [Suspect]
     Indication: CHANGE OF BOWEL HABIT
     Route: 048
     Dates: start: 20040601, end: 20041208
  2. MULTI-VITAMIN [Concomitant]
  3. CALCIUM [Concomitant]
  4. ZOCOR [Concomitant]
     Indication: BLOOD CHOLESTEROL
  5. SYNTHROID [Concomitant]
     Indication: HYPOTHYROIDISM
  6. NAPROSYN [Concomitant]
     Indication: NECK PAIN

REACTIONS (12)
  - ASTHENIA [None]
  - CONFUSIONAL STATE [None]
  - DYSSTASIA [None]
  - EXTRASYSTOLES [None]
  - FAECES DISCOLOURED [None]
  - FATIGUE [None]
  - HAEMATOCHEZIA [None]
  - HAEMORRHAGE [None]
  - HEART RATE IRREGULAR [None]
  - MELAENA [None]
  - PALLOR [None]
  - PALPITATIONS [None]
